FAERS Safety Report 6484451-X (Version None)
Quarter: 2009Q4

REPORT INFORMATION
  Report Type: 
  Country: None (occurrence: None)
  Receive Date: 20091209
  Receipt Date: 20091130
  Transmission Date: 20100525
  Serious: Yes (Other)
  Sender: FDA-Public Use
  Company Number: PHHY2009AU48574

PATIENT
  Sex: Male
  Weight: 80 kg

DRUGS (9)
  1. GLEEVEC [Suspect]
     Dosage: UNK
     Route: 048
  2. GLEEVEC [Suspect]
     Dosage: 700 MG, UNK
     Route: 048
  3. RANITIDINE [Concomitant]
     Dosage: 300 MG
     Route: 048
     Dates: start: 20030101
  4. SIMVASTATIN [Concomitant]
     Dosage: 20 MG
     Route: 048
     Dates: start: 20030101
  5. DOTHIEPIN [Concomitant]
     Dosage: 150 MG
     Route: 048
     Dates: start: 20040913
  6. VERAPAMIL [Concomitant]
     Dosage: 20 MG TDS
     Route: 048
     Dates: start: 20030101
  7. DINIT [Concomitant]
     Dosage: 20 MG TDS
     Route: 048
     Dates: start: 20030101
  8. ASPIRIN [Concomitant]
     Dosage: UNK
     Dates: start: 20030101
  9. INTERFERON ALFA [Concomitant]

REACTIONS (1)
  - BLOOD PRODUCT TRANSFUSION DEPENDENT [None]
